FAERS Safety Report 6410796-5 (Version None)
Quarter: 2009Q4

REPORT INFORMATION
  Report Type: 
  Country: None (occurrence: None)
  Receive Date: 20091022
  Receipt Date: 20080728
  Transmission Date: 20100525
  Serious: Yes (Other)
  Sender: FDA-Public Use
  Company Number: PHHY2008GB16795

PATIENT
  Sex: Female

DRUGS (4)
  1. CLOZARIL [Suspect]
     Indication: SCHIZOPHRENIA
     Dosage: 600 MG DAILY, UNK
     Dates: start: 19940818
  2. CLOZARIL [Suspect]
     Dosage: 625 MG DAILY
  3. NICOTINE (NCH) [Suspect]
  4. NICORETTE [Concomitant]

REACTIONS (3)
  - DRUG INTERACTION [None]
  - OROPHARYNGEAL PAIN [None]
  - SCHIZOPHRENIA [None]
